FAERS Safety Report 22528283 (Version 1)
Quarter: 2023Q2

REPORT INFORMATION
  Report Type: Spontaneous
  Country: JP (occurrence: JP)
  Receive Date: 20230607
  Receipt Date: 20230607
  Transmission Date: 20230721
  Serious: Yes (Death)
  Sender: FDA-Public Use
  Company Number: JP-MTPC-MTPC2023-0014236

PATIENT
  Age: 8 Decade
  Sex: Male

DRUGS (2)
  1. EDARAVONE [Suspect]
     Active Substance: EDARAVONE
     Indication: Amyotrophic lateral sclerosis
     Dosage: 60 MILLIGRAM, QD
     Route: 041
  2. RILUZOLE [Concomitant]
     Active Substance: RILUZOLE
     Dosage: UNK
     Route: 065

REACTIONS (1)
  - Asphyxia [Fatal]
